FAERS Safety Report 11723140 (Version 1)
Quarter: 2015Q4

REPORT INFORMATION
  Report Type: Spontaneous
  Country: US (occurrence: None)
  Receive Date: 20151110
  Receipt Date: 20151110
  Transmission Date: 20160304
  Serious: Yes (Disabling)
  Sender: FDA-Public Use
  Company Number: None

PATIENT
  Age: 38 Year
  Sex: Male
  Weight: 92.99 kg

DRUGS (3)
  1. MICARDIS [Concomitant]
     Active Substance: TELMISARTAN
  2. CIPRO [Suspect]
     Active Substance: CIPROFLOXACIN HYDROCHLORIDE
     Indication: URINARY TRACT INFECTION
     Dosage: 1 PILL  TWICE DAILY TAKEN BY MOUTH
     Route: 048
     Dates: start: 20150520, end: 20150530
  3. ADALAT [Concomitant]
     Active Substance: NIFEDIPINE

REACTIONS (15)
  - Joint range of motion decreased [None]
  - Pain [None]
  - Tendon rupture [None]
  - Rash [None]
  - Gait disturbance [None]
  - Decreased activity [None]
  - Fatigue [None]
  - Tendon pain [None]
  - Suicidal ideation [None]
  - Confusional state [None]
  - Dyspnoea [None]
  - Headache [None]
  - Arthralgia [None]
  - Hypersomnia [None]
  - Musculoskeletal pain [None]

NARRATIVE: CASE EVENT DATE: 20150520
